FAERS Safety Report 12137091 (Version 1)
Quarter: 2016Q1

REPORT INFORMATION
  Report Type: Spontaneous
  Country: US (occurrence: None)
  Receive Date: 20160301
  Receipt Date: 20160301
  Transmission Date: 20160526
  Serious: Yes (Life-Threatening, Hospitalization, Other)
  Sender: FDA-Public Use
  Company Number: None

PATIENT
  Age: 35 Year
  Sex: Female
  Weight: 61.24 kg

DRUGS (3)
  1. IRON [Concomitant]
     Active Substance: IRON
  2. EPIPEN [Suspect]
     Active Substance: EPINEPHRINE
  3. EPIPEN [Concomitant]
     Active Substance: EPINEPHRINE

REACTIONS (4)
  - Dyspnoea [None]
  - Blood pressure decreased [None]
  - Chest discomfort [None]
  - Fear [None]

NARRATIVE: CASE EVENT DATE: 20160224
